FAERS Safety Report 10968461 (Version 1)
Quarter: 2015Q1

REPORT INFORMATION
  Report Type: Spontaneous
  Country: PL (occurrence: PL)
  Receive Date: 20150330
  Receipt Date: 20150330
  Transmission Date: 20150721
  Serious: No
  Sender: FDA-Public Use
  Company Number: PHHY2015PL035218

PATIENT
  Age: 27 Year
  Sex: Female

DRUGS (8)
  1. NILOTINIB [Suspect]
     Active Substance: NILOTINIB
     Indication: STEM CELL TRANSPLANT
     Dosage: 400 MG, QD FOR 168 DAYS
     Route: 065
  2. INTERFERON ALFA NOS [Concomitant]
     Active Substance: INTERFERON ALFA-2A OR INTERFERON ALFA-2B
     Indication: CHRONIC MYELOID LEUKAEMIA
     Dosage: 9 M U, QD FOR 90 DAYS
     Route: 065
     Dates: start: 20131115, end: 20140414
  3. NILOTINIB [Suspect]
     Active Substance: NILOTINIB
     Indication: CHRONIC MYELOID LEUKAEMIA
     Dosage: 800 MG QD FOR 168 DAYS
     Route: 065
     Dates: start: 20120820, end: 20130204
  4. INTERFERON ALFA NOS [Concomitant]
     Active Substance: INTERFERON ALFA-2A OR INTERFERON ALFA-2B
     Indication: STEM CELL TRANSPLANT
     Dosage: 4.5 M U, QD FOR 175 DAYS
     Route: 065
     Dates: start: 20140415, end: 20141007
  5. DASATINIB [Suspect]
     Active Substance: DASATINIB
     Indication: CHRONIC MYELOID LEUKAEMIA
     Dosage: 100 MG/D FOR 200 DAYS
     Route: 065
     Dates: start: 20120131, end: 20120819
  6. IMATINIB [Suspect]
     Active Substance: IMATINIB
     Indication: STEM CELL TRANSPLANT
     Dosage: 200 MG, QD FOR 220 DAYS
     Route: 065
  7. DASATINIB [Suspect]
     Active Substance: DASATINIB
     Indication: STEM CELL TRANSPLANT
     Dosage: 80 MG, QD FOR 200 DAYS
     Route: 065
  8. IMATINIB [Suspect]
     Active Substance: IMATINIB
     Indication: CHRONIC MYELOID LEUKAEMIA
     Dosage: 400 MG, QD FOR 220 DAYS
     Route: 065
     Dates: start: 20130409, end: 20131115

REACTIONS (7)
  - Alanine aminotransferase increased [Recovered/Resolved]
  - Rash maculo-papular [Recovered/Resolved]
  - Aspartate aminotransferase increased [Recovered/Resolved]
  - Thrombocytopenia [Recovered/Resolved]
  - Erythema [Recovered/Resolved]
  - Cytogenetic analysis abnormal [Unknown]
  - Neutropenia [Recovered/Resolved]
